FAERS Safety Report 5349582-6 (Version None)
Quarter: 2007Q2

REPORT INFORMATION
  Report Type: 
  Country: None (occurrence: None)
  Receive Date: 20070607
  Receipt Date: 20070529
  Transmission Date: 20071010
  Serious: Yes (Hospitalization)
  Sender: FDA-Public Use
  Company Number: US-ELI_LILLY_AND_COMPANY-US200607004993

PATIENT
  Age: 83 Year
  Sex: Female

DRUGS (14)
  1. FORTEO [Suspect]
     Indication: BONE DENSITY DECREASED
     Dosage: UNK, UNK
     Dates: start: 20060101, end: 20060525
  2. FORTEO [Suspect]
     Dates: start: 20060530
  3. PROPRANOLOL [Concomitant]
  4. ALTACE [Concomitant]
     Dosage: 2.5 UNK, UNK
  5. COLAZAL [Concomitant]
  6. LEVSINEX [Concomitant]
  7. MULTIVITAMIN [Concomitant]
  8. ATROVENT [Concomitant]
  9. FINACEA [Concomitant]
     Dosage: UNK, 2/D
     Route: 061
  10. ASCORBIC ACID [Concomitant]
     Dosage: 1000 MG, DAILY (1/D)
  11. CALCIUM WITH VITAMIN D [Concomitant]
     Dosage: UNK, 2/D
  12. ENTERIC ASPIRIN [Concomitant]
     Dosage: 325 UNK, 2/W
  13. MAGNESIUM SULFATE [Concomitant]
     Dosage: UNK, 3/D
  14. ACIDOPHILUS [Concomitant]
     Dosage: UNK, 2/D

REACTIONS (5)
  - ATROPHIC VULVOVAGINITIS [None]
  - BACK DISORDER [None]
  - DYSURIA [None]
  - MUSCLE SPASMS [None]
  - RECTOCELE [None]
